FAERS Safety Report 24778774 (Version 1)
Quarter: 2024Q4

REPORT INFORMATION
  Report Type: Spontaneous
  Country: US (occurrence: US)
  Receive Date: 20241226
  Receipt Date: 20241226
  Transmission Date: 20250114
  Serious: Yes (Death)
  Sender: OPKO HEALTH
  Company Number: US-OPKO PHARMACEUTICALS, LLC.-2024OPK00332

PATIENT
  Age: 86 Year
  Sex: Female

DRUGS (2)
  1. RAYALDEE [Suspect]
     Active Substance: CALCIFEDIOL
     Indication: Chronic kidney disease
     Dosage: 30 MCG, QD
     Route: 048
     Dates: start: 20240331, end: 20241118
  2. RAYALDEE [Suspect]
     Active Substance: CALCIFEDIOL
     Indication: Hyperparathyroidism secondary

REACTIONS (1)
  - Death [Fatal]

NARRATIVE: CASE EVENT DATE: 20241119
